FAERS Safety Report 7515247-5 (Version None)
Quarter: 2011Q2

REPORT INFORMATION
  Report Type: 
  Country: None (occurrence: None)
  Receive Date: 20110601
  Receipt Date: 20100528
  Transmission Date: 20111010
  Serious: Yes (Other)
  Sender: FDA-Public Use
  Company Number: US-PFIZER INC-2010038016

PATIENT
  Age: 72 Year
  Sex: Male
  Weight: 79.83 kg

DRUGS (1)
  1. CHANTIX [Suspect]
     Dosage: 1 MG, 2X/DAY
     Route: 048
     Dates: start: 20100310

REACTIONS (4)
  - SLEEP DISORDER [None]
  - ABNORMAL DREAMS [None]
  - AGGRESSION [None]
  - AFFECTIVE DISORDER [None]
